FAERS Safety Report 10387988 (Version 2)
Quarter: 2014Q4

REPORT INFORMATION
  Report Type: Spontaneous
  Country: JP (occurrence: JP)
  Receive Date: 20140815
  Receipt Date: 20141006
  Transmission Date: 20150528
  Serious: Yes (Other)
  Sender: FDA-Public Use
  Company Number: JP-ASTRAZENECA-2014SE57817

PATIENT
  Age: 79 Year
  Sex: Male

DRUGS (5)
  1. FENTANYL CITRATE. [Concomitant]
     Active Substance: FENTANYL CITRATE
     Indication: GENERAL ANAESTHESIA
     Route: 042
  2. ROCURONIUM BROMIDE. [Concomitant]
     Active Substance: ROCURONIUM BROMIDE
     Indication: GENERAL ANAESTHESIA
     Route: 042
  3. DIPRIVAN [Suspect]
     Active Substance: PROPOFOL
     Indication: GENERAL ANAESTHESIA
     Route: 042
  4. REMIFENTANIL HYDROCHLORIDE [Concomitant]
     Active Substance: REMIFENTANIL HYDROCHLORIDE
     Indication: GENERAL ANAESTHESIA
     Route: 042
  5. NICORANDIL [Concomitant]
     Active Substance: NICORANDIL
     Route: 042

REACTIONS (2)
  - Extrasystoles [Recovered/Resolved]
  - Ventricular tachycardia [Recovered/Resolved]
